FAERS Safety Report 8382772-7 (Version None)
Quarter: 2012Q2

REPORT INFORMATION
  Report Type: 
  Country: None (occurrence: None)
  Receive Date: 20120524
  Receipt Date: 20120518
  Transmission Date: 20120825
  Serious: Yes (Hospitalization)
  Sender: FDA-Public Use
  Company Number: US-BAYER-2011-109989

PATIENT
  Age: 29 Year
  Sex: Female

DRUGS (6)
  1. NEXIUM [Concomitant]
     Dosage: UNK
     Route: 048
     Dates: start: 20030916
  2. DROSPIRENONE AND ETHINYL ESTRADIOL [Suspect]
     Dosage: UNK
     Dates: start: 20011001, end: 20090101
  3. YASMIN [Suspect]
     Dosage: UNK
     Dates: start: 20011001, end: 20090101
  4. ZOLOFT [Concomitant]
     Dosage: 50 MG, UNK
     Route: 048
     Dates: start: 20030918
  5. LEVAQUIN [Concomitant]
     Dosage: 500 MG, UNK
     Route: 048
     Dates: start: 20030923
  6. ZYRTEC [Concomitant]
     Dosage: 5 MG, UNK
     Route: 048
     Dates: start: 20030922

REACTIONS (6)
  - EMOTIONAL DISTRESS [None]
  - ACTIVITIES OF DAILY LIVING IMPAIRED [None]
  - PAIN [None]
  - CHOLECYSTITIS CHRONIC [None]
  - GALLBLADDER DISORDER [None]
  - PANIC ATTACK [None]
